FAERS Safety Report 19514444 (Version 1)
Quarter: 2021Q3

REPORT INFORMATION
  Report Type: Report from Study
  Country: DE (occurrence: DE)
  Receive Date: 20210709
  Receipt Date: 20210709
  Transmission Date: 20211014
  Serious: Yes (Other)
  Sender: FDA-Public Use
  Company Number: NVSC2020DE286735

PATIENT
  Sex: Male
  Weight: 90 kg

DRUGS (1)
  1. MAYZENT [Suspect]
     Active Substance: SIPONIMOD
     Indication: SECONDARY PROGRESSIVE MULTIPLE SCLEROSIS
     Dosage: 2 MG, QD
     Route: 048
     Dates: start: 20200617, end: 20200904

REACTIONS (6)
  - Retinal vein occlusion [Unknown]
  - Visual impairment [Unknown]
  - Macular oedema [Recovering/Resolving]
  - Diabetic retinal oedema [Recovering/Resolving]
  - Metamorphopsia [Unknown]
  - Blood glucose abnormal [Unknown]

NARRATIVE: CASE EVENT DATE: 20200903
